FAERS Safety Report 25421450 (Version 1)
Quarter: 2025Q2

REPORT INFORMATION
  Report Type: Spontaneous
  Country: GB (occurrence: GB)
  Receive Date: 20250611
  Receipt Date: 20250611
  Transmission Date: 20250717
  Serious: Yes (Hospitalization, Other)
  Sender: CELLTRION
  Company Number: None

PATIENT

DRUGS (1)
  1. USTEKINUMAB [Suspect]
     Active Substance: USTEKINUMAB
     Indication: Crohn^s disease

REACTIONS (3)
  - Eosinophilia [Not Recovered/Not Resolved]
  - Skin injury [Unknown]
  - Traumatic lung injury [Unknown]

NARRATIVE: CASE EVENT DATE: 20250415
